FAERS Safety Report 5591991-4 (Version None)
Quarter: 2008Q1

REPORT INFORMATION
  Report Type: 
  Country: None (occurrence: None)
  Receive Date: 20080115
  Receipt Date: 20080107
  Transmission Date: 20080703
  Serious: Yes (Hospitalization)
  Sender: FDA-Public Use
  Company Number: FR-ASTRAZENECA-2008CG00021

PATIENT
  Age: 918 Month
  Sex: Male

DRUGS (9)
  1. INEXIUM [Suspect]
     Route: 048
     Dates: start: 20050101
  2. VERCYTE [Suspect]
     Indication: POLYCYTHAEMIA VERA
     Route: 048
     Dates: start: 20050101
  3. ISOBAR [Suspect]
     Indication: HYPERTENSION
     Route: 048
     Dates: start: 20070301, end: 20070810
  4. AERIUS [Suspect]
     Indication: HYPERSENSITIVITY
     Route: 048
  5. ZYLORIC [Suspect]
     Indication: GOUT
     Route: 048
     Dates: start: 20050101, end: 20070701
  6. ISOPTIN [Suspect]
     Indication: HYPERTENSION
     Route: 048
     Dates: start: 19970101
  7. FLECAINIDE ACETATE [Suspect]
     Indication: ARRHYTHMIA
     Route: 048
     Dates: start: 19970101
  8. KARDEGIC [Suspect]
     Indication: THROMBOSIS PROPHYLAXIS
     Route: 048
     Dates: start: 20050101
  9. DOLIPRANE [Concomitant]
     Indication: PAIN
     Route: 048

REACTIONS (1)
  - LICHENOID KERATOSIS [None]
